FAERS Safety Report 6242492-1 (Version None)
Quarter: 2009Q2

REPORT INFORMATION
  Report Type: 
  Country: None (occurrence: None)
  Receive Date: 20090624
  Receipt Date: 20090622
  Transmission Date: 20091009
  Serious: Yes (Hospitalization)
  Sender: FDA-Public Use
  Company Number: FR-ASTRAZENECA-2009CG01285

PATIENT
  Age: 62 Year
  Sex: Female

DRUGS (6)
  1. DIPRIVAN [Suspect]
     Route: 042
     Dates: start: 20060110, end: 20060110
  2. NIMBEX [Suspect]
     Dates: start: 20060110, end: 20060110
  3. ULTIVA [Suspect]
     Dates: start: 20060110, end: 20060110
  4. SEVORANE [Suspect]
     Dates: start: 20060110, end: 20060110
  5. HEXABRIX [Suspect]
     Dates: start: 20060110, end: 20060110
  6. LIPIODOL [Suspect]
     Dates: start: 20060110, end: 20060110

REACTIONS (1)
  - ANAPHYLACTIC SHOCK [None]
